FAERS Safety Report 11295114 (Version 2)
Quarter: 2015Q3

REPORT INFORMATION
  Report Type: Report from Study
  Country: VE (occurrence: VE)
  Receive Date: 20150723
  Receipt Date: 20150807
  Transmission Date: 20151125
  Serious: Yes (Hospitalization, Other)
  Sender: FDA-Public Use
  Company Number: VE-ABBVIE-15K-178-1431325-00

PATIENT
  Sex: Male
  Weight: 70 kg

DRUGS (1)
  1. HUMIRA [Suspect]
     Active Substance: ADALIMUMAB
     Indication: PSORIASIS
     Route: 058
     Dates: start: 20140723, end: 201504

REACTIONS (1)
  - Inguinal hernia [Recovering/Resolving]
